FAERS Safety Report 8380102-8 (Version None)
Quarter: 2012Q2

REPORT INFORMATION
  Report Type: 
  Country: None (occurrence: None)
  Receive Date: 20120523
  Receipt Date: 20120516
  Transmission Date: 20120825
  Serious: Yes (Hospitalization, Other)
  Sender: FDA-Public Use
  Company Number: US-AMGEN-USASP2011035440

PATIENT
  Age: 19 Year
  Sex: Female
  Weight: 71.927 kg

DRUGS (18)
  1. WHOLE BLOOD [Concomitant]
     Dosage: 2 IU, UNK
     Dates: start: 20110101
  2. ERGOCALCIFEROL [Concomitant]
     Dosage: UNK
     Dates: start: 20101117
  3. TOPAMAX [Concomitant]
     Dosage: UNK
     Dates: start: 20110107
  4. FOSRENOL [Concomitant]
     Dosage: UNK
     Dates: start: 20110802
  5. POTASSIUM CHLORIDE [Concomitant]
     Dosage: UNK
     Dates: start: 20110628
  6. LASIX [Concomitant]
     Dosage: UNK
     Dates: start: 20101124
  7. AMLODIPINE BESYLATE [Concomitant]
     Dosage: UNK
     Dates: start: 20110104, end: 20110517
  8. EPOGEN [Suspect]
     Indication: RENAL FAILURE CHRONIC
     Dosage: 20000 IU, QMO
     Route: 058
     Dates: start: 20101129, end: 20101214
  9. EPOGEN [Suspect]
     Dosage: 20000 IU, Q2WK
     Route: 058
     Dates: start: 20101214, end: 20110104
  10. EPOGEN [Suspect]
     Dosage: 30000 IU, Q2WK
     Dates: start: 20100101
  11. CARVEDILOL [Concomitant]
     Dosage: UNK
     Dates: start: 20110315
  12. WHOLE BLOOD [Concomitant]
     Dosage: 1 IU, UNK
     Dates: start: 20110101
  13. GENTAMICIN [Concomitant]
     Dosage: UNK
     Route: 061
     Dates: start: 20101117
  14. EPOGEN [Suspect]
     Dosage: 40000 IU, UNK
     Route: 058
     Dates: start: 20110201, end: 20110428
  15. NIFEDIPINE [Concomitant]
     Dosage: UNK
     Dates: start: 20110628
  16. RENAGEL [Concomitant]
  17. EPOGEN [Suspect]
     Indication: ANAEMIA
     Dosage: 20000 IU, Q2WK
     Route: 058
     Dates: start: 20110428
  18. ALBUTEROL [Concomitant]
     Dosage: UNK
     Dates: start: 20110201

REACTIONS (12)
  - FLUID OVERLOAD [None]
  - DYSPNOEA [None]
  - VOMITING [None]
  - COUGH [None]
  - BLOOD ERYTHROPOIETIN ABNORMAL [None]
  - DRUG INEFFECTIVE [None]
  - HAEMATEMESIS [None]
  - CONVULSION [None]
  - NAUSEA [None]
  - POSTERIOR REVERSIBLE ENCEPHALOPATHY SYNDROME [None]
  - PNEUMONIA [None]
  - ANAEMIA [None]
